FAERS Safety Report 19364585 (Version 1)
Quarter: 2021Q2

REPORT INFORMATION
  Report Type: Spontaneous
  Country: US (occurrence: US)
  Receive Date: 20210603
  Receipt Date: 20210603
  Transmission Date: 20210717
  Serious: Yes (Other)
  Sender: FDA-Public Use
  Company Number: US-BAYER-2021-147424

PATIENT
  Age: 90 Year
  Sex: Male
  Weight: 81.6 kg

DRUGS (9)
  1. FISH OIL [Concomitant]
     Active Substance: FISH OIL
  2. HYOSCYAMINE. [Concomitant]
     Active Substance: HYOSCYAMINE
     Dosage: ONE TABLET EVERY 6?8 HOURS
  3. VITAMIN D [VITAMIN D NOS] [Concomitant]
     Active Substance: VITAMIN D NOS
  4. BAYER LOW DOSE [Suspect]
     Active Substance: ASPIRIN
     Dosage: EVERY 2 OR 3 DAYS
  5. ONDANSETRON [Concomitant]
     Active Substance: ONDANSETRON
     Dosage: 2 DF, TID
  6. MAGNESIUM CITRATE. [Suspect]
     Active Substance: MAGNESIUM CITRATE
     Dosage: 1 DF, QD
     Dates: start: 202103, end: 20210325
  7. CHARCOAL [Concomitant]
     Active Substance: ACTIVATED CHARCOAL
  8. IRON [Concomitant]
     Active Substance: IRON
  9. GAS?X [Concomitant]
     Active Substance: DIMETHICONE

REACTIONS (6)
  - Flatulence [Recovering/Resolving]
  - Faeces hard [Recovering/Resolving]
  - Diarrhoea [Recovered/Resolved]
  - Melaena [Recovered/Resolved]
  - Faeces discoloured [Not Recovered/Not Resolved]
  - Bowel movement irregularity [Not Recovered/Not Resolved]

NARRATIVE: CASE EVENT DATE: 202103
